FAERS Safety Report 23778373 (Version 1)
Quarter: 2024Q2

REPORT INFORMATION
  Report Type: Spontaneous
  Country: US (occurrence: None)
  Receive Date: 20240424
  Receipt Date: 20240424
  Transmission Date: 20240716
  Serious: No
  Sender: FDA-Public Use
  Company Number: None

PATIENT
  Age: 33 Year
  Sex: Male

DRUGS (4)
  1. FINASTERIDE [Suspect]
     Active Substance: FINASTERIDE
     Indication: Androgenetic alopecia
     Dates: start: 20230901
  2. Daily multi [Concomitant]
  3. FISH OIL [Concomitant]
     Active Substance: FISH OIL
  4. VITAMIN D3 [Concomitant]
     Active Substance: CHOLECALCIFEROL

REACTIONS (3)
  - Testicular pain [None]
  - Discomfort [None]
  - Sleep disorder [None]

NARRATIVE: CASE EVENT DATE: 20231001
